FAERS Safety Report 4613972-7 (Version None)
Quarter: 2005Q1

REPORT INFORMATION
  Report Type: 
  Country: None (occurrence: None)
  Receive Date: 20050321
  Receipt Date: 20050124
  Transmission Date: 20050727
  Serious: Yes (Life-Threatening)
  Sender: FDA-Public Use
  Company Number: FR-ROCHE-393680

PATIENT
  Age: 84 Year
  Sex: Female

DRUGS (2)
  1. ROCEPHIN [Suspect]
     Indication: INFECTION
     Route: 042
     Dates: start: 20041227
  2. IZILOX [Suspect]
     Indication: INFECTION
     Route: 048
     Dates: start: 20050110

REACTIONS (10)
  - AGRANULOCYTOSIS [None]
  - BONE MARROW TOXICITY [None]
  - CHOLESTASIS [None]
  - COUGH [None]
  - CYTOLYTIC HEPATITIS [None]
  - HEPATITIS [None]
  - JAUNDICE [None]
  - MUCOSAL INFLAMMATION [None]
  - RASH [None]
  - THROMBOCYTOPENIA [None]
